FAERS Safety Report 23109064 (Version 1)
Quarter: 2023Q4

REPORT INFORMATION
  Report Type: Spontaneous
  Country: US (occurrence: None)
  Receive Date: 20231025
  Receipt Date: 20231025
  Transmission Date: 20240109
  Serious: Yes (Life-Threatening, Hospitalization)
  Sender: FDA-Public Use
  Company Number: None

PATIENT
  Age: 76 Year
  Sex: Female
  Weight: 99 kg

DRUGS (8)
  1. PAXLOVID [Suspect]
     Active Substance: NIRMATRELVIR\RITONAVIR
     Indication: COVID-19
     Dosage: OTHER QUANTITY : 3 TABLET(S);?FREQUENCY : TWICE A DAY;?
     Route: 048
     Dates: start: 20231017, end: 20231019
  2. HYDROCHLOROTHIAZIDE\LOSARTAN [Concomitant]
     Active Substance: HYDROCHLOROTHIAZIDE\LOSARTAN
  3. ATORVASTATIN [Concomitant]
     Active Substance: ATORVASTATIN
  4. LEVOTHYROXINE [Concomitant]
     Active Substance: LEVOTHYROXINE
  5. ALEVE [Concomitant]
     Active Substance: NAPROXEN SODIUM
  6. LORATADINE [Concomitant]
     Active Substance: LORATADINE
  7. HERBALS\TURMERIC [Concomitant]
     Active Substance: HERBALS\TURMERIC
  8. VITAMINS [Concomitant]
     Active Substance: VITAMINS

REACTIONS (9)
  - SARS-CoV-2 antibody test positive [None]
  - Diarrhoea [None]
  - Vomiting [None]
  - Anxiety [None]
  - Disturbance in attention [None]
  - Insomnia [None]
  - Musculoskeletal stiffness [None]
  - Blood sodium decreased [None]
  - Drug interaction [None]

NARRATIVE: CASE EVENT DATE: 20231020
